FAERS Safety Report 11176581 (Version 2)
Quarter: 2015Q2

REPORT INFORMATION
  Report Type: Report from Study
  Country: JP (occurrence: JP)
  Receive Date: 20150610
  Receipt Date: 20150630
  Transmission Date: 20150821
  Serious: Yes (Other)
  Sender: FDA-Public Use
  Company Number: PHHY2012JP026021

PATIENT
  Age: 40 Year
  Sex: Female

DRUGS (35)
  1. CLOZARIL [Suspect]
     Active Substance: CLOZAPINE
     Dosage: 25 MG, QD
     Route: 048
     Dates: start: 20110419, end: 20110420
  2. CLOZARIL [Suspect]
     Active Substance: CLOZAPINE
     Dosage: 500 MG, QD
     Route: 048
     Dates: start: 20111022, end: 20111024
  3. CLOZARIL [Suspect]
     Active Substance: CLOZAPINE
     Dosage: 200 MG, QD
     Route: 048
     Dates: start: 20110505, end: 20110526
  4. CLOZARIL [Suspect]
     Active Substance: CLOZAPINE
     Dosage: 150 MG, QD
     Route: 048
     Dates: start: 20110709, end: 20110711
  5. LEVOMEPROMAZINE [Concomitant]
     Active Substance: LEVOMEPROMAZINE
     Indication: SCHIZOPHRENIA, PARANOID TYPE
     Dosage: 50 MG, QD
     Route: 048
     Dates: start: 20110418, end: 20110426
  6. CLOZARIL [Suspect]
     Active Substance: CLOZAPINE
     Indication: SCHIZOPHRENIA, PARANOID TYPE
     Dosage: 12.5 MG, QD
     Route: 048
     Dates: start: 20110418, end: 20110418
  7. CLOZARIL [Suspect]
     Active Substance: CLOZAPINE
     Dosage: 125 MG, QD
     Route: 048
     Dates: start: 20110429, end: 20110430
  8. CLOZARIL [Suspect]
     Active Substance: CLOZAPINE
     Dosage: 125 MG, QD
     Route: 048
     Dates: start: 20110702, end: 20110704
  9. CLOZARIL [Suspect]
     Active Substance: CLOZAPINE
     Dosage: 225 MG, QD
     Route: 048
     Dates: start: 20110730, end: 20110808
  10. CLOZARIL [Suspect]
     Active Substance: CLOZAPINE
     Dosage: 300 MG, QD
     Route: 048
     Dates: start: 20110827, end: 20110902
  11. CLOZARIL [Suspect]
     Active Substance: CLOZAPINE
     Dosage: 475 MG, QD
     Route: 048
     Dates: start: 20111018, end: 20111021
  12. CLOZARIL [Suspect]
     Active Substance: CLOZAPINE
     Dosage: 150 MG, QD
     Route: 048
     Dates: start: 20110501, end: 20110502
  13. CLOZARIL [Suspect]
     Active Substance: CLOZAPINE
     Dosage: 112.5 MG, QD
     Route: 048
     Dates: start: 20110628, end: 20110701
  14. CLOZARIL [Suspect]
     Active Substance: CLOZAPINE
     Dosage: 200 MG, QD
     Route: 048
     Dates: start: 20110723, end: 20110729
  15. CLOZARIL [Suspect]
     Active Substance: CLOZAPINE
     Dosage: 525 MG, QD
     Route: 048
     Dates: start: 20111025, end: 20111028
  16. CLOZARIL [Suspect]
     Active Substance: CLOZAPINE
     Dosage: 600 MG, QD
     Route: 048
     Dates: start: 20111105, end: 20111202
  17. CLOZARIL [Suspect]
     Active Substance: CLOZAPINE
     Dosage: 50 MG, QD
     Route: 048
     Dates: start: 20110421, end: 20110425
  18. CLOZARIL [Suspect]
     Active Substance: CLOZAPINE
     Dosage: 100 MG, QD
     Route: 048
     Dates: start: 20110427, end: 20110428
  19. CLOZARIL [Suspect]
     Active Substance: CLOZAPINE
     Dosage: 100 MG, QD
     Route: 048
     Dates: start: 20110531, end: 20110627
  20. CLOZARIL [Suspect]
     Active Substance: CLOZAPINE
     Dosage: 275 MG, QD
     Route: 048
     Dates: start: 20110820, end: 20110826
  21. CLOZARIL [Suspect]
     Active Substance: CLOZAPINE
     Dosage: 500 MG, QD
     Route: 048
     Dates: start: 20111203, end: 20120112
  22. CLOZARIL [Suspect]
     Active Substance: CLOZAPINE
     Dosage: 75 MG, QD
     Route: 048
     Dates: start: 20110426, end: 20110426
  23. CLOZARIL [Suspect]
     Active Substance: CLOZAPINE
     Dosage: 162.5 MG, QD
     Route: 048
     Dates: start: 20110712, end: 20110715
  24. CLOZARIL [Suspect]
     Active Substance: CLOZAPINE
     Dosage: 575 MG, QD
     Route: 048
     Dates: start: 20111101, end: 20111104
  25. LEVOMEPROMAZINE [Concomitant]
     Active Substance: LEVOMEPROMAZINE
     Dosage: 25 OT, QD
     Route: 048
     Dates: start: 20120112, end: 20120112
  26. CLOZARIL [Suspect]
     Active Substance: CLOZAPINE
     Dosage: 175 MG, QD
     Route: 048
     Dates: start: 20110716, end: 20110719
  27. CLOZARIL [Suspect]
     Active Substance: CLOZAPINE
     Dosage: 250 MG, QD
     Route: 048
     Dates: start: 20110809, end: 20110819
  28. CLOZARIL [Suspect]
     Active Substance: CLOZAPINE
     Dosage: 325 MG, QD
     Route: 048
     Dates: start: 20110903
  29. URSODEOXYCHOLIC ACID [Concomitant]
     Active Substance: URSODIOL
     Indication: PROPHYLAXIS
     Dosage: 600 MG, QD
     Route: 048
     Dates: start: 20111018, end: 20120112
  30. CLOZARIL [Suspect]
     Active Substance: CLOZAPINE
     Dosage: 175 MG, QD
     Route: 048
     Dates: start: 20110503, end: 20110504
  31. CLOZARIL [Suspect]
     Active Substance: CLOZAPINE
     Dosage: 150 MG, QD
     Route: 048
     Dates: start: 20110527, end: 20110530
  32. CLOZARIL [Suspect]
     Active Substance: CLOZAPINE
     Dosage: 137.5 MG, QD
     Route: 048
     Dates: start: 20110705, end: 20110708
  33. CLOZARIL [Suspect]
     Active Substance: CLOZAPINE
     Dosage: 187.5 MG, QD
     Route: 048
     Dates: start: 20110720, end: 20110722
  34. CLOZARIL [Suspect]
     Active Substance: CLOZAPINE
     Dosage: 550 MG, QD
     Route: 048
     Dates: start: 20111029, end: 20111031
  35. VALPROIC ACID. [Concomitant]
     Active Substance: VALPROIC ACID
     Indication: SCHIZOPHRENIA, PARANOID TYPE
     Dosage: 800 MG, QD
     Route: 048
     Dates: start: 20110418, end: 20110602

REACTIONS (12)
  - Aspartate aminotransferase increased [Recovered/Resolved]
  - Constipation [Not Recovered/Not Resolved]
  - Tremor [Recovered/Resolved]
  - Decreased appetite [Unknown]
  - Muscle spasms [Recovering/Resolving]
  - Salivary hypersecretion [Recovered/Resolved]
  - Salivary hypersecretion [Recovered/Resolved]
  - Psychiatric symptom [Unknown]
  - Ammonia increased [Recovered/Resolved]
  - Weight decreased [Not Recovered/Not Resolved]
  - Hyperprolactinaemia [Recovered/Resolved]
  - Alanine aminotransferase increased [Recovered/Resolved]

NARRATIVE: CASE EVENT DATE: 20110418
